FAERS Safety Report 22169058 (Version 1)
Quarter: 2023Q2

REPORT INFORMATION
  Report Type: Report from Study
  Country: US (occurrence: US)
  Receive Date: 20230404
  Receipt Date: 20230404
  Transmission Date: 20230722
  Serious: Yes (Other)
  Sender: FDA-Public Use
  Company Number: US-ABBVIE-4323833

PATIENT
  Age: 63 Year
  Sex: Male

DRUGS (2)
  1. HUMIRA [Suspect]
     Active Substance: ADALIMUMAB
     Indication: Psoriatic arthropathy
     Route: 058
     Dates: start: 20210101
  2. HUMIRA [Suspect]
     Active Substance: ADALIMUMAB
     Route: 058
     Dates: start: 20230223

REACTIONS (6)
  - Knee arthroplasty [Recovering/Resolving]
  - Foot deformity [Unknown]
  - Pneumocystis jirovecii pneumonia [Recovering/Resolving]
  - Peripheral swelling [Unknown]
  - Musculoskeletal stiffness [Unknown]
  - Arthralgia [Unknown]

NARRATIVE: CASE EVENT DATE: 20230208
